FAERS Safety Report 17495522 (Version 1)
Quarter: 2020Q1

REPORT INFORMATION
  Report Type: Spontaneous
  Country: US (occurrence: US)
  Receive Date: 20200224
  Receipt Date: 20200224
  Transmission Date: 20200409
  Serious: No
  Sender: FDA-Public Use
  Company Number: None

PATIENT
  Age: 69 Year
  Sex: Male

DRUGS (1)
  1. HYDROXYUREA CAP 500MG [Suspect]
     Active Substance: HYDROXYUREA
     Route: 048
     Dates: start: 2020, end: 20200224

REACTIONS (2)
  - Drug ineffective [None]
  - Therapy cessation [None]

NARRATIVE: CASE EVENT DATE: 20200224
